FAERS Safety Report 24849411 (Version 2)
Quarter: 2025Q1

REPORT INFORMATION
  Report Type: Report from Study
  Country: US (occurrence: US)
  Receive Date: 20250116
  Receipt Date: 20250131
  Transmission Date: 20250409
  Serious: No
  Sender: BAUSCH AND LOMB
  Company Number: US-BAUSCH-BL-2025-000566

PATIENT
  Age: 68 Year
  Sex: Male

DRUGS (1)
  1. TARGRETIN [Suspect]
     Active Substance: BEXAROTENE
     Indication: Product used for unknown indication
     Route: 048
     Dates: start: 202406, end: 20250108

REACTIONS (2)
  - Therapy interrupted [Unknown]
  - Product availability issue [Unknown]
